FAERS Safety Report 5010014-9 (Version None)
Quarter: 2006Q2

REPORT INFORMATION
  Report Type: 
  Country: None (occurrence: None)
  Receive Date: 20060511
  Receipt Date: 20060427
  Transmission Date: 20061013
  Serious: Yes (Other)
  Sender: FDA-Public Use
  Company Number: 2006BH008898

PATIENT
  Sex: Male

DRUGS (6)
  1. HEMOPHIL (FACTOR VIII (ANTIHAEMOPHILIC FACTOR)) [Suspect]
     Indication: FACTOR VIII DEFICIENCY
     Dates: start: 19750101, end: 19810101
  2. ANTIHEMOPHILIC FACTOR (HUMAN) [Suspect]
     Indication: FACTOR VIII DEFICIENCY
     Dates: start: 19770101, end: 19810101
  3. FACTOR VIII (ANTIHAEMOPHILIC FACTOR) (FACTOR VIII (ANTIHAEMOPHILIC FAC [Suspect]
     Indication: FACTOR VIII DEFICIENCY
     Dates: start: 19700101, end: 19880101
  4. WHOLE BLOOD [Suspect]
     Dates: start: 19600101
  5. PLASMA [Suspect]
     Dates: start: 19710101
  6. CRYOPRECIPITATE (NO PREF. NAME) [Suspect]
     Indication: FACTOR VIII DEFICIENCY
     Dates: start: 19700101, end: 19780101

REACTIONS (4)
  - HEPATITIS B VIRUS [None]
  - HEPATITIS C VIRUS [None]
  - HIV INFECTION [None]
  - PHARMACEUTICAL PRODUCT COMPLAINT [None]
